FAERS Safety Report 8564303-1 (Version None)
Quarter: 2012Q3

REPORT INFORMATION
  Report Type: 
  Country: None (occurrence: None)
  Receive Date: 20120803
  Receipt Date: 20120724
  Transmission Date: 20120928
  Serious: Yes (Other)
  Sender: FDA-Public Use
  Company Number: US-JNJFOC-20120713011

PATIENT
  Sex: Female
  Weight: 90.72 kg

DRUGS (11)
  1. REMICADE [Suspect]
     Indication: COLITIS ULCERATIVE
     Route: 042
     Dates: start: 20120101
  2. POTASSIUM CHLORIDE [Concomitant]
     Indication: NUTRITIONAL SUPPORT
     Route: 048
  3. ZETIA [Concomitant]
     Indication: BLOOD CHOLESTEROL
     Route: 048
  4. RALOXIFENE HYDROCHLORIDE [Concomitant]
     Indication: MUSCLE DISORDER
     Route: 048
  5. RALOXIFENE HYDROCHLORIDE [Concomitant]
     Indication: OSTEOPOROSIS PROPHYLAXIS
     Route: 048
  6. TRILIPIX [Concomitant]
     Indication: BLOOD CHOLESTEROL
     Route: 048
  7. ALLERGY MEDICATION [Concomitant]
     Indication: MULTIPLE ALLERGIES
     Route: 050
  8. DIOVAN [Concomitant]
     Indication: BLOOD PRESSURE
     Route: 048
  9. PROTONIX [Concomitant]
     Indication: GASTROOESOPHAGEAL REFLUX DISEASE
     Route: 048
  10. CARDURA [Concomitant]
     Indication: BLOOD PRESSURE
     Route: 048
  11. LOPRESSOR [Concomitant]
     Indication: BLOOD PRESSURE
     Route: 048

REACTIONS (2)
  - HYPERKERATOSIS [None]
  - OEDEMA PERIPHERAL [None]
